FAERS Safety Report 20513723 (Version 1)
Quarter: 2022Q1

REPORT INFORMATION
  Report Type: Spontaneous
  Country: US (occurrence: US)
  Receive Date: 20220224
  Receipt Date: 20220224
  Transmission Date: 20220424
  Serious: No
  Sender: FDA-Public Use
  Company Number: US-AMNEAL PHARMACEUTICALS-2021-AMRX-01668

PATIENT
  Sex: Female

DRUGS (3)
  1. RYTARY [Suspect]
     Active Substance: CARBIDOPA\LEVODOPA
     Indication: Parkinson^s disease
     Dosage: 2 CAPSULES, EVERY 5 HOURS
     Route: 065
     Dates: start: 202103, end: 20210513
  2. CARBIDOPA\LEVODOPA [Suspect]
     Active Substance: CARBIDOPA\LEVODOPA
     Indication: Parkinson^s disease
     Dosage: 2 TABLETS, EVERY 5 HOURS
     Route: 065
     Dates: end: 202103
  3. CARBIDOPA\LEVODOPA [Suspect]
     Active Substance: CARBIDOPA\LEVODOPA
     Dosage: 1 TABLETS, EVERY 5 HOURS
     Route: 065
     Dates: start: 202103, end: 2021

REACTIONS (10)
  - Vertigo [Unknown]
  - Abdominal distension [Unknown]
  - Abdominal discomfort [Unknown]
  - Limb discomfort [Unknown]
  - Hypoaesthesia [Unknown]
  - Blood pressure fluctuation [Not Recovered/Not Resolved]
  - Tremor [Unknown]
  - Insomnia [Recovered/Resolved]
  - Thinking abnormal [Unknown]
  - Drug ineffective [Unknown]

NARRATIVE: CASE EVENT DATE: 20210101
